FAERS Safety Report 9392648 (Version 2)
Quarter: 2013Q3

REPORT INFORMATION
  Report Type: Report from Study
  Country: TW (occurrence: TW)
  Receive Date: 20130710
  Receipt Date: 20130726
  Transmission Date: 20140515
  Serious: Yes (Hospitalization)
  Sender: FDA-Public Use
  Company Number: TW-BAYER-2013-080842

PATIENT
  Age: 66 Year
  Sex: Male

DRUGS (5)
  1. SORAFENIB (RAF KINASE INHIBITOR) [Suspect]
     Indication: HEPATOCELLULAR CARCINOMA
     Dosage: 400 MG, BID
     Route: 048
     Dates: start: 20130612, end: 20130618
  2. MONOCLONAL ANTIBODIES [Suspect]
     Indication: HEPATOCELLULAR CARCINOMA
     Dosage: 1600 MG, OW
     Route: 042
     Dates: start: 20130611, end: 20130618
  3. VENA [Concomitant]
     Indication: PROPHYLAXIS
     Dosage: 30 MG, OW
     Route: 042
     Dates: start: 20130611
  4. SILYMARIN [Concomitant]
     Indication: HEPATIC CIRRHOSIS
     Dosage: 35 MG, TID
     Route: 048
     Dates: start: 20130516
  5. PARACETAMOL [Concomitant]
     Indication: PYREXIA
     Dosage: 500MG STAT
     Route: 048
     Dates: start: 20130611, end: 20130611

REACTIONS (1)
  - Hypotension [Recovered/Resolved]
